FAERS Safety Report 8032684-3 (Version None)
Quarter: 2012Q1

REPORT INFORMATION
  Report Type: 
  Country: None (occurrence: None)
  Receive Date: 20120110
  Receipt Date: 20111229
  Transmission Date: 20120608
  Serious: Yes (Hospitalization)
  Sender: FDA-Public Use
  Company Number: GB-UCBSA-048507

PATIENT
  Age: 62 Year
  Sex: Male

DRUGS (1)
  1. CIMZIA [Suspect]
     Indication: RHEUMATOID ARTHRITIS
     Dosage: 400 MG (FIRST LOADING DOSE)
     Route: 058
     Dates: start: 20111229

REACTIONS (4)
  - VOMITING [None]
  - RASH ERYTHEMATOUS [None]
  - VISION BLURRED [None]
  - FLUSHING [None]
